FAERS Safety Report 4782438-6 (Version None)
Quarter: 2005Q3

REPORT INFORMATION
  Report Type: 
  Country: None (occurrence: None)
  Receive Date: 20050929
  Receipt Date: 20041021
  Transmission Date: 20060218
  Serious: No
  Sender: FDA-Public Use
  Company Number: 386184

PATIENT
  Age: 66 Year
  Sex: Male
  Weight: 54.5 kg

DRUGS (3)
  1. COREG [Suspect]
     Indication: HYPERTENSION
     Dosage: 6.25MG PER DAY
     Route: 048
     Dates: start: 20040916, end: 20040919
  2. LEXAPRO [Concomitant]
     Route: 065
     Dates: start: 20040501
  3. HYDROCHIDE [Concomitant]
     Dosage: 12U UNKNOWN
     Dates: start: 20040301

REACTIONS (2)
  - ASTHMA [None]
  - BRONCHOSPASM [None]
